FAERS Safety Report 5910299-8 (Version None)
Quarter: 2008Q4

REPORT INFORMATION
  Report Type: 
  Country: None (occurrence: None)
  Receive Date: 20081007
  Receipt Date: 20080930
  Transmission Date: 20090506
  Serious: Yes (Other)
  Sender: FDA-Public Use
  Company Number: US-WYE-H06197208

PATIENT
  Sex: Female
  Weight: 9.99 kg

DRUGS (2)
  1. ROBITUSSIN PEDIATRIC COUGH [Suspect]
     Indication: COUGH
     Dosage: 1/2 TEASPOON X 2
     Route: 048
     Dates: start: 20080929, end: 20080929
  2. ROBITUSSIN PEDIATRIC COUGH [Suspect]
     Indication: NASOPHARYNGITIS

REACTIONS (7)
  - CYANOSIS [None]
  - HYPOVENTILATION [None]
  - OFF LABEL USE [None]
  - PALLOR [None]
  - PERIPHERAL COLDNESS [None]
  - SKIN WARM [None]
  - SOMNOLENCE [None]
